FAERS Safety Report 14926137 (Version 2)
Quarter: 2018Q2

REPORT INFORMATION
  Report Type: Report from Study
  Country: None (occurrence: AR)
  Receive Date: 20180523
  Receipt Date: 20180622
  Transmission Date: 20180711
  Serious: Yes (Death, Hospitalization, Other)
  Sender: FDA-Public Use
  Company Number: AR-ABBVIE-18S-007-2361810-00

PATIENT
  Age: 73 Year
  Sex: Female

DRUGS (1)
  1. ZEMPLAR [Suspect]
     Active Substance: PARICALCITOL
     Indication: HYPERPARATHYROIDISM SECONDARY
     Route: 048
     Dates: start: 20160210

REACTIONS (4)
  - Seizure [Unknown]
  - Cardiac arrest [Fatal]
  - Renal failure [Unknown]
  - Aspiration bronchial [Unknown]

NARRATIVE: CASE EVENT DATE: 201802
